FAERS Safety Report 8104548-8 (Version None)
Quarter: 2012Q1

REPORT INFORMATION
  Report Type: 
  Country: None (occurrence: None)
  Receive Date: 20120201
  Receipt Date: 20120120
  Transmission Date: 20120608
  Serious: Yes (Hospitalization)
  Sender: FDA-Public Use
  Company Number: JP-MERCK-1201USA02022

PATIENT
  Age: 31 Year
  Sex: Male

DRUGS (2)
  1. PREDNISOLONE [Concomitant]
     Route: 048
     Dates: start: 20101201
  2. SINGULAIR [Suspect]
     Indication: ASTHMA
     Route: 048
     Dates: start: 20110201

REACTIONS (2)
  - EOSINOPHIL COUNT INCREASED [None]
  - MONONEUROPATHY MULTIPLEX [None]
